FAERS Safety Report 7302752-X (Version None)
Quarter: 2011Q1

REPORT INFORMATION
  Report Type: 
  Country: None (occurrence: None)
  Receive Date: 20110218
  Receipt Date: 20110208
  Transmission Date: 20110831
  Serious: Yes (Hospitalization)
  Sender: FDA-Public Use
  Company Number: FR-WATSON-2011-01973

PATIENT
  Age: 3 Week

DRUGS (2)
  1. GENTAMICIN SULFATE [Suspect]
     Indication: INFECTION
     Dosage: UNK
  2. CEFOTAXIME [Suspect]
     Indication: INFECTION
     Dosage: UNK

REACTIONS (6)
  - EOSINOPHILIA [None]
  - NEPHRITIS ALLERGIC [None]
  - HEPATITIS [None]
  - RENAL FAILURE ACUTE [None]
  - TUBULOINTERSTITIAL NEPHRITIS [None]
  - NEPHRITIS AUTOIMMUNE [None]
